FAERS Safety Report 26108512 (Version 1)
Quarter: 2025Q4

REPORT INFORMATION
  Report Type: Spontaneous
  Country: IN (occurrence: IN)
  Receive Date: 20251201
  Receipt Date: 20251201
  Transmission Date: 20260119
  Serious: Yes (Other)
  Sender: INCYTE
  Company Number: IN-002147023-NVSC2025IN181820

PATIENT
  Age: 10 Year

DRUGS (2)
  1. RUXOLITINIB [Suspect]
     Active Substance: RUXOLITINIB
     Indication: Graft versus host disease
     Dosage: 20 MG
  2. RUXOLITINIB [Suspect]
     Active Substance: RUXOLITINIB
     Dosage: 5 MG (OD)

REACTIONS (6)
  - Pneumonia respiratory syncytial viral [Unknown]
  - Anaemia [Unknown]
  - Cytopenia [Unknown]
  - Scleroderma [Unknown]
  - Incorrect dose administered [Unknown]
  - Conjunctival hyperaemia [Unknown]
